FAERS Safety Report 12236258 (Version 2)
Quarter: 2016Q2

REPORT INFORMATION
  Report Type: Spontaneous
  Country: US (occurrence: US)
  Receive Date: 20160404
  Receipt Date: 20160411
  Transmission Date: 20160815
  Serious: Yes (Other)
  Sender: FDA-Public Use
  Company Number: US-PFIZER INC-2016050632

PATIENT
  Age: 53 Year
  Sex: Female

DRUGS (22)
  1. EFFEXOR [Concomitant]
     Active Substance: VENLAFAXINE HYDROCHLORIDE
     Dosage: 75 MG, UNK (75 MG XR 24H CAP )
  2. TB-PPD [Concomitant]
     Dosage: UNK
     Dates: start: 20111201
  3. PNEUMOVAX 23 [Concomitant]
     Active Substance: PNEUMOCOCCAL VACCINE, POLYVALENT 23
     Dosage: UNK
     Dates: start: 20110712
  4. TB-PPD [Concomitant]
     Dosage: UNK
     Dates: start: 20110712
  5. TD [Concomitant]
     Dosage: UNK
     Dates: start: 20111201
  6. FLUVAX [Concomitant]
     Active Substance: INFLUENZA VIRUS VACCINE
     Dosage: UNK
     Dates: start: 20111201
  7. PNEUMOVAX 23 [Concomitant]
     Active Substance: PNEUMOCOCCAL VACCINE, POLYVALENT 23
     Dosage: UNK
     Dates: start: 20110614
  8. FLUVAX [Concomitant]
     Active Substance: INFLUENZA VIRUS VACCINE
     Dosage: UNK
     Dates: start: 20111031
  9. TB-PPD [Concomitant]
     Dosage: UNK
     Dates: start: 20111031
  10. TD [Concomitant]
     Dosage: UNK
     Dates: start: 20110712
  11. FLUVAX [Concomitant]
     Active Substance: INFLUENZA VIRUS VACCINE
     Dosage: UNK
     Dates: start: 20110614
  12. LAMICTAL [Concomitant]
     Active Substance: LAMOTRIGINE
     Dosage: UNK
  13. TB-PPD [Concomitant]
     Dosage: UNK
     Dates: start: 201204
  14. LYRICA [Suspect]
     Active Substance: PREGABALIN
     Dosage: 75 MG, 2X/DAY
     Route: 048
  15. TB-PPD [Concomitant]
     Dosage: UNK
     Dates: start: 20140614
  16. PNEUMOVAX 23 [Concomitant]
     Active Substance: PNEUMOCOCCAL VACCINE, POLYVALENT 23
     Dosage: UNK
     Dates: start: 20111031
  17. TD [Concomitant]
     Dosage: UNK
     Dates: start: 20110614
  18. ALBUTEROL SULFATE. [Concomitant]
     Active Substance: ALBUTEROL SULFATE
     Dosage: UNK, AS NEEDED (1 VIAL IN NEBULIZER EVERY 4-6 HRS, AS NEEDED)
  19. TD [Concomitant]
     Dosage: UNK
     Dates: start: 20111031
  20. PNEUMOVAX 23 [Concomitant]
     Active Substance: PNEUMOCOCCAL VACCINE, POLYVALENT 23
     Dosage: UNK
     Dates: start: 20111201
  21. FLUVAX [Concomitant]
     Active Substance: INFLUENZA VIRUS VACCINE
     Dosage: UNK
     Dates: start: 2010
  22. FLUVAX [Concomitant]
     Active Substance: INFLUENZA VIRUS VACCINE
     Dosage: UNK
     Dates: start: 20110712

REACTIONS (3)
  - Abasia [Unknown]
  - Pain in extremity [Unknown]
  - Malaise [Unknown]
